FAERS Safety Report 8416599-4 (Version None)
Quarter: 2012Q2

REPORT INFORMATION
  Report Type: 
  Country: None (occurrence: None)
  Receive Date: 20120606
  Receipt Date: 20120530
  Transmission Date: 20120825
  Serious: Yes (Other)
  Sender: FDA-Public Use
  Company Number: US-JNJFOC-20120306365

PATIENT
  Sex: Male

DRUGS (4)
  1. RITALIN [Suspect]
     Indication: ATTENTION DEFICIT/HYPERACTIVITY DISORDER
     Dosage: TWICE A ADAY
     Route: 065
     Dates: start: 20120403
  2. ROXICODONE [Suspect]
     Indication: BACK PAIN
     Dosage: 2 THRICE DAILY
     Route: 048
     Dates: start: 20110213
  3. NUCYNTA [Suspect]
     Dosage: FOUR TIMES A DAY PLUS ONE A DAY FOR BREAKTHROUGH PAIN
     Route: 048
     Dates: start: 20120301, end: 20120301
  4. NUCYNTA [Suspect]
     Indication: BACK PAIN
     Dosage: 2 TIMES DAILY
     Route: 048
     Dates: start: 20120213, end: 20120301

REACTIONS (9)
  - CONVULSION [None]
  - BREAKTHROUGH PAIN [None]
  - HALLUCINATION, VISUAL [None]
  - SPEECH DISORDER [None]
  - MUSCLE FATIGUE [None]
  - MENTAL IMPAIRMENT [None]
  - HALLUCINATION, AUDITORY [None]
  - DIZZINESS [None]
  - MYALGIA [None]
